FAERS Safety Report 11221578 (Version 1)
Quarter: 2015Q2

REPORT INFORMATION
  Report Type: Spontaneous
  Country: GB (occurrence: GB)
  Receive Date: 20150626
  Receipt Date: 20150626
  Transmission Date: 20150821
  Serious: Yes (Congenital Anomaly, Other)
  Sender: FDA-Public Use
  Company Number: GB-TEVA-572837ACC

PATIENT
  Age: 21 Year
  Sex: Male

DRUGS (4)
  1. OLANZAPINE. [Suspect]
     Active Substance: OLANZAPINE
     Dosage: 10 MILLIGRAM DAILY; AT NIGHT
  2. CLONAZEPAM. [Concomitant]
     Active Substance: CLONAZEPAM
     Dosage: 1 MILLIGRAM DAILY;
  3. OLANZAPINE. [Suspect]
     Active Substance: OLANZAPINE
     Indication: PSYCHOTIC DISORDER
     Route: 048
     Dates: start: 20130725, end: 20150608
  4. OLANZAPINE. [Suspect]
     Active Substance: OLANZAPINE
     Dosage: 5 MILLIGRAM DAILY; AT NIGHT

REACTIONS (6)
  - Pollakiuria [Recovering/Resolving]
  - Urinary incontinence [Recovering/Resolving]
  - Enuresis [Recovering/Resolving]
  - Urinary retention [Recovering/Resolving]
  - Urine output decreased [Recovering/Resolving]
  - Dysuria [Recovering/Resolving]

NARRATIVE: CASE EVENT DATE: 20141212
